FAERS Safety Report 25327304 (Version 2)
Quarter: 2025Q3

REPORT INFORMATION
  Report Type: Spontaneous
  Country: CN (occurrence: CN)
  Receive Date: 20250517
  Receipt Date: 20250803
  Transmission Date: 20251021
  Serious: Yes (Other)
  Sender: ALEXION PHARMACEUTICALS
  Company Number: CN-AstraZeneca-CH-00868345A

PATIENT
  Age: 44 Year
  Sex: Female

DRUGS (1)
  1. SYMBICORT [Suspect]
     Active Substance: BUDESONIDE\FORMOTEROL FUMARATE DIHYDRATE
     Indication: Asthma
     Route: 065

REACTIONS (7)
  - Cough [Unknown]
  - Dysphonia [Unknown]
  - Heart rate increased [Unknown]
  - Cardiac flutter [Unknown]
  - Tremor [Unknown]
  - Anxiety [Unknown]
  - Insomnia [Unknown]
